FAERS Safety Report 5748531-6 (Version None)
Quarter: 2008Q2

REPORT INFORMATION
  Report Type: 
  Country: None (occurrence: None)
  Receive Date: 20080520
  Receipt Date: 20080506
  Transmission Date: 20081010
  Serious: Yes (Hospitalization)
  Sender: FDA-Public Use
  Company Number: TRP_01002_2007

PATIENT
  Sex: Female
  Weight: 72.5755 kg

DRUGS (2)
  1. RIBASPHERE [Suspect]
     Indication: HEPATITIS C
     Dosage: (1000 MG QD ORAL)
     Route: 048
     Dates: start: 20071017, end: 20071026
  2. PEG-INTRON [Suspect]
     Indication: HEPATITIS C
     Dosage: (96 UG 1X/WEEK SUBCUTANEOUS)
     Route: 058
     Dates: start: 20071017, end: 20071024

REACTIONS (15)
  - BLOOD CALCIUM DECREASED [None]
  - GRAND MAL CONVULSION [None]
  - HYDRONEPHROSIS [None]
  - HYPERGLYCAEMIA [None]
  - HYPONATRAEMIA [None]
  - LOSS OF CONSCIOUSNESS [None]
  - MUSCLE DISORDER [None]
  - NEPHROLITHIASIS [None]
  - POSTICTAL STATE [None]
  - RENAL CYST [None]
  - SINUS ARRHYTHMIA [None]
  - THERAPEUTIC AGENT TOXICITY [None]
  - URINE KETONE BODY PRESENT [None]
  - WATER INTOXICATION [None]
  - WHITE BLOOD CELL COUNT INCREASED [None]
